FAERS Safety Report 14690023 (Version 1)
Quarter: 2018Q1

REPORT INFORMATION
  Report Type: Spontaneous
  Country: US (occurrence: US)
  Receive Date: 20180327
  Receipt Date: 20180327
  Transmission Date: 20180509
  Serious: Yes (Other)
  Sender: FDA-Public Use
  Company Number: None

PATIENT
  Age: 46 Year
  Sex: Female
  Weight: 67.5 kg

DRUGS (1)
  1. CIPRO [Suspect]
     Active Substance: CIPROFLOXACIN HYDROCHLORIDE
     Indication: ILL-DEFINED DISORDER
     Route: 048
     Dates: start: 20061001, end: 20061015

REACTIONS (6)
  - Systemic candida [None]
  - Arthralgia [None]
  - Mobility decreased [None]
  - Abdominal pain [None]
  - Tendon pain [None]
  - Musculoskeletal discomfort [None]

NARRATIVE: CASE EVENT DATE: 20061101
